FAERS Safety Report 12093461 (Version 3)
Quarter: 2016Q2

REPORT INFORMATION
  Report Type: Report from Study
  Country: US (occurrence: US)
  Receive Date: 20160219
  Receipt Date: 20160506
  Transmission Date: 20160815
  Serious: No
  Sender: FDA-Public Use
  Company Number: US-AMGEN-USASL2016018437

PATIENT
  Age: 62 Year
  Sex: Female

DRUGS (1)
  1. ENBREL [Suspect]
     Active Substance: ETANERCEPT
     Indication: LEUKOCYTE ANTIGEN B-27 POSITIVE
     Dosage: 50 MG, QWK
     Route: 065
     Dates: start: 201510

REACTIONS (3)
  - Off label use [Unknown]
  - Ear infection [Unknown]
  - Frustration tolerance decreased [Unknown]

NARRATIVE: CASE EVENT DATE: 201510
